FAERS Safety Report 7541281-5 (Version None)
Quarter: 2011Q2

REPORT INFORMATION
  Report Type: 
  Country: None (occurrence: None)
  Receive Date: 20110610
  Receipt Date: 20110603
  Transmission Date: 20111010
  Serious: Yes (Hospitalization)
  Sender: FDA-Public Use
  Company Number: US-AMGEN-USASP2011028882

PATIENT
  Age: 77 Year
  Sex: Female

DRUGS (6)
  1. PROLIA [Suspect]
     Indication: OSTEOPOROSIS POSTMENOPAUSAL
     Dosage: 60 MG, Q6MO
     Dates: start: 20100801
  2. CALCIUM CARBONATE [Concomitant]
  3. MULTIVITAMIN                       /00097801/ [Concomitant]
  4. RANITIDINE [Concomitant]
  5. THYROID TAB [Concomitant]
  6. ZOCOR [Concomitant]

REACTIONS (4)
  - FALL [None]
  - PAIN IN EXTREMITY [None]
  - FIBULA FRACTURE [None]
  - TIBIA FRACTURE [None]
